FAERS Safety Report 4336229-0 (Version None)
Quarter: 2004Q2

REPORT INFORMATION
  Report Type: 
  Country: None (occurrence: None)
  Receive Date: 20040407
  Receipt Date: 20040323
  Transmission Date: 20050107
  Serious: Yes (Hospitalization, Other)
  Sender: FDA-Public Use
  Company Number: DE_031012288

PATIENT
  Age: 42 Year
  Sex: Female
  Weight: 40 kg

DRUGS (9)
  1. ZYPREXA [Suspect]
     Indication: SCHIZOPHRENIA, PARANOID TYPE
     Dosage: 2.5 MG/3 DAY
  2. TEGRETAL - SLOW RELEASE (CARBAMAZEPINE) [Concomitant]
  3. CARBIUM (CARBAMAZEPINE) [Concomitant]
  4. THYRONAJOD [Concomitant]
  5. JODTHYROX [Concomitant]
  6. PANTOZOL (PANTOPRAZOLE SODIUM) [Concomitant]
  7. MARCUMAR [Concomitant]
  8. EUGULAC (LACTULOSE) [Concomitant]
  9. NOVALDIN INJ [Concomitant]

REACTIONS (7)
  - DEEP VEIN THROMBOSIS [None]
  - DIET REFUSAL [None]
  - DRUG INTERACTION [None]
  - HYPERCOAGULATION [None]
  - INTERNATIONAL NORMALISED RATIO INCREASED [None]
  - PELVIC VENOUS THROMBOSIS [None]
  - PROTHROMBIN TIME PROLONGED [None]
